FAERS Safety Report 12090558 (Version 2)
Quarter: 2016Q1

REPORT INFORMATION
  Report Type: Spontaneous
  Country: BR (occurrence: BR)
  Receive Date: 20160218
  Receipt Date: 20160224
  Transmission Date: 20160526
  Serious: Yes (Other)
  Sender: FDA-Public Use
  Company Number: BR-JNJFOC-20160212392

PATIENT
  Sex: Male

DRUGS (2)
  1. PREDNISONE. [Concomitant]
     Active Substance: PREDNISONE
     Route: 065
  2. INFLIXIMAB, RECOMBINANT [Suspect]
     Active Substance: INFLIXIMAB
     Indication: AXIAL SPONDYLOARTHRITIS
     Route: 042
     Dates: start: 2002, end: 2012

REACTIONS (5)
  - Uveitis [Unknown]
  - Off label use [Unknown]
  - Product use issue [Unknown]
  - Drug effect decreased [Unknown]
  - Arthritis [Unknown]

NARRATIVE: CASE EVENT DATE: 2002
